FAERS Safety Report 10210581 (Version 2)
Quarter: 2014Q3

REPORT INFORMATION
  Report Type: Spontaneous
  Country: US (occurrence: None)
  Receive Date: 20140528
  Receipt Date: 20140703
  Transmission Date: 20150326
  Serious: Yes (Death)
  Sender: FDA-Public Use
  Company Number: UNT-2014-000860

PATIENT
  Age: 58 Year
  Sex: Female
  Weight: 50.3 kg

DRUGS (3)
  1. TADALAFIL (TADALAFIL) [Concomitant]
  2. REMODULIN [Suspect]
     Active Substance: TREPROSTINIL
     Indication: COR PULMONALE CHRONIC
     Dosage: 0.043 UG/KG/MIN, CONTINUING, IV DRIP
     Route: 041
     Dates: start: 20111122
  3. WARFARIN (WARFARIN) [Concomitant]
     Active Substance: WARFARIN

REACTIONS (4)
  - Eisenmenger^s syndrome [None]
  - Death [None]
  - Disease progression [None]
  - Pulmonary arterial hypertension [None]

NARRATIVE: CASE EVENT DATE: 20140218
